FAERS Safety Report 16482955 (Version 2)
Quarter: 2019Q3

REPORT INFORMATION
  Report Type: Report from Study
  Country: IT (occurrence: IT)
  Receive Date: 20190627
  Receipt Date: 20190701
  Transmission Date: 20191004
  Serious: Yes (Life-Threatening, Hospitalization)
  Sender: FDA-Public Use
  Company Number: IT-ROCHE-2268099

PATIENT
  Age: 72 Year
  Sex: Male
  Weight: 74 kg

DRUGS (28)
  1. BISOPROLOL [Concomitant]
     Active Substance: BISOPROLOL
     Route: 048
  2. TERAZOSINA TEVA [Concomitant]
     Route: 048
  3. URBASON [METHYLPREDNISOLONE] [Concomitant]
     Active Substance: METHYLPREDNISOLONE
     Indication: PNEUMONIA
     Route: 042
     Dates: start: 20190104, end: 20190115
  4. RAMIPRIL. [Concomitant]
     Active Substance: RAMIPRIL
     Route: 048
     Dates: end: 20180420
  5. SILDENAFIL. [Suspect]
     Active Substance: SILDENAFIL
     Indication: IDIOPATHIC PULMONARY FIBROSIS
     Dosage: DATE OF MOST RECENT DOSE OF SILDENAFIL (60MG) PRIOR TO AE ONSET: 05/FEB/2019
     Route: 048
     Dates: start: 20180516
  6. RAMIPRIL. [Concomitant]
     Active Substance: RAMIPRIL
     Route: 048
     Dates: start: 20190326
  7. PIRFENIDONE. [Suspect]
     Active Substance: PIRFENIDONE
     Indication: IDIOPATHIC PULMONARY FIBROSIS
     Dosage: 1602 TO 2403 MILLIGRAM PER DAY (MG/DAY)?DATE OF MOST RECENT DOSE OF PIRFENIDONE (801 MG) 2403 MG PRI
     Route: 048
     Dates: start: 20180420
  8. BISOPROLOL [Concomitant]
     Active Substance: BISOPROLOL
     Dosage: 1 TAB 8-20HOURS
     Route: 048
  9. LASIX [Concomitant]
     Active Substance: FUROSEMIDE
     Route: 048
     Dates: start: 20190116
  10. DELTACORTENE [Concomitant]
     Active Substance: PREDNISONE
     Indication: PNEUMONIA
     Route: 048
     Dates: end: 20190103
  11. FLECAINIDE [Concomitant]
     Active Substance: FLECAINIDE
     Route: 048
  12. TERAZOSINA TEVA [Concomitant]
     Route: 048
     Dates: start: 20190326
  13. ZYLORIC [Concomitant]
     Active Substance: ALLOPURINOL
     Indication: PNEUMONIA
     Route: 048
     Dates: start: 20190107
  14. LASIX [Concomitant]
     Active Substance: FUROSEMIDE
     Indication: PNEUMONIA
     Route: 042
     Dates: start: 20190108, end: 20190115
  15. FLECAINIDE [Concomitant]
     Active Substance: FLECAINIDE
     Route: 048
  16. PANTOPRAZOLE [Concomitant]
     Active Substance: PANTOPRAZOLE
     Indication: PNEUMONIA
     Route: 042
     Dates: start: 20190105, end: 20190115
  17. LASIX [Concomitant]
     Active Substance: FUROSEMIDE
     Route: 065
  18. OMEPRAZOLE. [Concomitant]
     Active Substance: OMEPRAZOLE
     Route: 048
     Dates: start: 20190116
  19. DELTACORTENE [Concomitant]
     Active Substance: PREDNISONE
     Route: 048
     Dates: start: 20190116, end: 20190123
  20. XANAX [Concomitant]
     Active Substance: ALPRAZOLAM
     Route: 048
     Dates: start: 20190306, end: 20190509
  21. CEFTRIAXONE. [Concomitant]
     Active Substance: CEFTRIAXONE
     Indication: PNEUMONIA
     Route: 042
     Dates: start: 20190104, end: 20190114
  22. ESCITALOPRAM [Concomitant]
     Active Substance: ESCITALOPRAM OXALATE
     Route: 065
  23. DELTACORTENE [Concomitant]
     Active Substance: PREDNISONE
     Route: 048
     Dates: start: 20190124
  24. DELTACORTENE [Concomitant]
     Active Substance: PREDNISONE
     Route: 048
     Dates: end: 20190103
  25. OMEPRAZOLE. [Concomitant]
     Active Substance: OMEPRAZOLE
     Route: 048
     Dates: end: 20190104
  26. APIXABAN [Concomitant]
     Active Substance: APIXABAN
     Route: 048
  27. INFLUENZA VACCINE [Concomitant]
     Active Substance: INFLUENZA VIRUS VACCINE
     Dosage: 1 AMPULE
     Route: 030
  28. XANAX [Concomitant]
     Active Substance: ALPRAZOLAM
     Route: 048
     Dates: start: 20190510

REACTIONS (4)
  - Cardiac failure [Recovered/Resolved with Sequelae]
  - Idiopathic pulmonary fibrosis [Recovered/Resolved]
  - Idiopathic pulmonary fibrosis [Recovered/Resolved]
  - Cardiac failure [Recovered/Resolved with Sequelae]

NARRATIVE: CASE EVENT DATE: 20190206
